FAERS Safety Report 7693894-8 (Version None)
Quarter: 2011Q3

REPORT INFORMATION
  Report Type: 
  Country: None (occurrence: None)
  Receive Date: 20110819
  Receipt Date: 20110812
  Transmission Date: 20111222
  Serious: Yes (Hospitalization)
  Sender: FDA-Public Use
  Company Number: US-ABBOTT-11P-163-0846492-00

PATIENT
  Sex: Female

DRUGS (2)
  1. IRON INFUSION [Suspect]
     Indication: BLOOD IRON DECREASED
     Dosage: INFUSION
     Dates: start: 20110708, end: 20110708
  2. LUPRON DEPOT [Suspect]
     Indication: UTERINE LEIOMYOMA
     Dates: start: 20110401

REACTIONS (3)
  - HOT FLUSH [None]
  - SLEEP DISORDER [None]
  - HYPERTENSION [None]
